FAERS Safety Report 18250666 (Version 1)
Quarter: 2020Q3

REPORT INFORMATION
  Report Type: Spontaneous
  Country: JP (occurrence: JP)
  Receive Date: 20200910
  Receipt Date: 20200910
  Transmission Date: 20201103
  Serious: No
  Sender: FDA-Public Use
  Company Number: JP-TOLMAR, INC.-20JP022611

PATIENT
  Age: 76 Year
  Sex: Male

DRUGS (2)
  1. CALCIPOTRIENE AND BETAMETHASONE DIPROPIONATE [Suspect]
     Active Substance: BETAMETHASONE DIPROPIONATE\CALCIPOTRIENE
     Indication: TRANSIENT ACANTHOLYTIC DERMATOSIS
     Dosage: UNK
     Route: 065
  2. CALCIPOTRIOL [Suspect]
     Active Substance: CALCIPOTRIENE
     Indication: TRANSIENT ACANTHOLYTIC DERMATOSIS
     Dosage: UNK
     Route: 065

REACTIONS (1)
  - Off label use [Unknown]
